FAERS Safety Report 4975885-0 (Version None)
Quarter: 2006Q2

REPORT INFORMATION
  Report Type: 
  Country: None (occurrence: None)
  Receive Date: 20060412
  Receipt Date: 20060330
  Transmission Date: 20061013
  Serious: Yes (Hospitalization)
  Sender: FDA-Public Use
  Company Number: 02100-JPN-06-0149

PATIENT
  Age: 92 Year
  Sex: Male

DRUGS (7)
  1. CILOSTAZOL [Suspect]
     Dosage: 100 MG ORAL
     Route: 048
  2. ASPIRIN [Suspect]
     Dosage: 100 MG ORAL
     Route: 048
  3. TICLOPIDINE HYDROCHLORIDE [Suspect]
     Dosage: 200 MG ORAL
     Route: 048
  4. REBAMIPIDE [Concomitant]
  5. VALSARTAN [Concomitant]
  6. ISOSORBIDE MONONITRATE [Concomitant]
  7. NICORANDIL [Concomitant]

REACTIONS (5)
  - CEREBELLAR HAEMORRHAGE [None]
  - DIFFICULTY IN WALKING [None]
  - DYSSTASIA [None]
  - NAUSEA [None]
  - VERTIGO [None]
